FAERS Safety Report 5430554-8 (Version None)
Quarter: 2007Q3

REPORT INFORMATION
  Report Type: 
  Country: None (occurrence: None)
  Receive Date: 20070830
  Receipt Date: 20070827
  Transmission Date: 20080115
  Serious: Yes (Hospitalization)
  Sender: FDA-Public Use
  Company Number: FR-ELI_LILLY_AND_COMPANY-FR200708005905

PATIENT
  Age: 73 Year
  Sex: Female

DRUGS (3)
  1. FORTEO [Suspect]
     Indication: OSTEOPOROSIS
     Dosage: 20 UG, DAILY (1/D)
     Route: 058
     Dates: start: 20070117
  2. ACARBOSE [Concomitant]
     Indication: DIABETES MELLITUS
  3. NOVONORM [Concomitant]
     Indication: DIABETES MELLITUS
     Dosage: UNK, 3/D

REACTIONS (1)
  - ANEURYSM [None]
